FAERS Safety Report 11800310 (Version 4)
Quarter: 2016Q1

REPORT INFORMATION
  Report Type: Spontaneous
  Country: US (occurrence: US)
  Receive Date: 20151203
  Receipt Date: 20160127
  Transmission Date: 20160525
  Serious: Yes (Death, Life-Threatening, Hospitalization, Disabling, Other)
  Sender: FDA-Public Use
  Company Number: US-009507513-1512USA001120

PATIENT
  Age: 76 Year
  Sex: Male
  Weight: 76.54 kg

DRUGS (1)
  1. NOXAFIL [Suspect]
     Active Substance: POSACONAZOLE
     Indication: INFECTION PROPHYLAXIS
     Dosage: 100 MG, TID
     Route: 048
     Dates: start: 20150828

REACTIONS (5)
  - Acute respiratory failure [Not Recovered/Not Resolved]
  - Acute kidney injury [Not Recovered/Not Resolved]
  - Death [Fatal]
  - Multiple organ dysfunction syndrome [Not Recovered/Not Resolved]
  - Sepsis [Not Recovered/Not Resolved]

NARRATIVE: CASE EVENT DATE: 20150907
